FAERS Safety Report 6859376-8 (Version None)
Quarter: 2010Q3

REPORT INFORMATION
  Report Type: 
  Country: None (occurrence: None)
  Receive Date: 20100719
  Receipt Date: 20080422
  Transmission Date: 20110219
  Serious: No
  Sender: FDA-Public Use
  Company Number: US-PFIZER INC-2008018960

PATIENT
  Age: 32 Year
  Sex: Female
  Weight: 87.1 kg

DRUGS (2)
  1. CHANTIX [Suspect]
     Indication: TOBACCO ABUSE
     Route: 048
     Dates: start: 20071112, end: 20080212
  2. CHANTIX [Suspect]
     Indication: SMOKING CESSATION THERAPY

REACTIONS (7)
  - BACK PAIN [None]
  - CRYING [None]
  - FATIGUE [None]
  - IRRITABILITY [None]
  - MENTAL DISORDER [None]
  - NECK PAIN [None]
  - PSYCHIATRIC SYMPTOM [None]
